FAERS Safety Report 7153825-6 (Version None)
Quarter: 2010Q4

REPORT INFORMATION
  Report Type: 
  Country: None (occurrence: None)
  Receive Date: 20101213
  Receipt Date: 20101026
  Transmission Date: 20110411
  Serious: No
  Sender: FDA-Public Use
  Company Number: US-ABBOTT-10P-163-0682303-00

PATIENT
  Sex: Female
  Weight: 79.904 kg

DRUGS (3)
  1. MERIDIA [Suspect]
     Indication: OVERWEIGHT
     Dates: start: 20090101, end: 20090101
  2. NORVASC [Concomitant]
     Indication: HYPERTENSION
  3. HYDROCHLOROTHIAZIDE [Concomitant]
     Indication: HYPERTENSION

REACTIONS (4)
  - DIZZINESS [None]
  - MALAISE [None]
  - PALPITATIONS [None]
  - RESPIRATORY RATE INCREASED [None]
